FAERS Safety Report 16350830 (Version 1)
Quarter: 2019Q2

REPORT INFORMATION
  Report Type: Spontaneous
  Country: GB (occurrence: GB)
  Receive Date: 20190524
  Receipt Date: 20190524
  Transmission Date: 20190711
  Serious: Yes (Life-Threatening, Hospitalization, Disabling, Other)
  Sender: FDA-Public Use
  Company Number: GB-TEVA-2019-GB-1053733

PATIENT
  Age: 49 Year
  Sex: Female
  Weight: 95 kg

DRUGS (1)
  1. OMEPRAZOLE. [Suspect]
     Active Substance: OMEPRAZOLE
     Indication: GASTRIC ULCER
     Dosage: 20-40MCG
     Route: 048
     Dates: start: 20100303, end: 20181212

REACTIONS (6)
  - Dizziness [Recovered/Resolved with Sequelae]
  - Wrong patient received product [Unknown]
  - Folate deficiency [Recovered/Resolved with Sequelae]
  - Vitamin D deficiency [Recovered/Resolved with Sequelae]
  - Intestinal obstruction [Recovered/Resolved with Sequelae]
  - Mean cell volume increased [Recovered/Resolved with Sequelae]

NARRATIVE: CASE EVENT DATE: 20100303
